FAERS Safety Report 8525451-5 (Version None)
Quarter: 2012Q3

REPORT INFORMATION
  Report Type: 
  Country: None (occurrence: None)
  Receive Date: 20120720
  Receipt Date: 20120712
  Transmission Date: 20120928
  Serious: Yes (Hospitalization)
  Sender: FDA-Public Use
  Company Number: CA-JNJFOC-20120707140

PATIENT
  Sex: Male
  Weight: 127 kg

DRUGS (4)
  1. REMICADE [Suspect]
     Route: 042
     Dates: start: 20120712
  2. REMICADE [Suspect]
     Indication: CROHN'S DISEASE
     Route: 042
     Dates: start: 20081208
  3. IMURAN [Concomitant]
     Dosage: 4 TABLETS ONCE A DAY
     Route: 048
  4. VARENICLINE TARTRATE [Concomitant]
     Route: 065

REACTIONS (2)
  - ANAL ABSCESS [None]
  - SURGERY [None]
